FAERS Safety Report 7404238-0 (Version None)
Quarter: 2011Q2

REPORT INFORMATION
  Report Type: 
  Country: None (occurrence: None)
  Receive Date: 20110408
  Receipt Date: 20110324
  Transmission Date: 20111010
  Serious: Yes (Other)
  Sender: FDA-Public Use
  Company Number: PHHY2011US25332

PATIENT
  Sex: Female
  Weight: 158 kg

DRUGS (1)
  1. ILARIS [Suspect]
     Indication: AUTOIMMUNE DISORDER
     Dosage: 180 MG, ONE VIAL EVERY EIGHT WEEKS
     Dates: start: 20101101, end: 20110201

REACTIONS (3)
  - AUTOIMMUNE DISORDER [None]
  - CONDITION AGGRAVATED [None]
  - INFLUENZA LIKE ILLNESS [None]
